FAERS Safety Report 4294105-6 (Version None)
Quarter: 2004Q1

REPORT INFORMATION
  Report Type: 
  Country: None (occurrence: None)
  Receive Date: 20040211
  Receipt Date: 20040114
  Transmission Date: 20041129
  Serious: Yes (Other)
  Sender: FDA-Public Use
  Company Number: DPC-2004-00013

PATIENT
  Age: 65 Year
  Sex: Female

DRUGS (2)
  1. FLOXIN OTIC (FLOXIN OTIC) (SOLUTION) (SODIUM HYDROXIDE, SODIUM CHLORID [Suspect]
     Indication: OTITIS MEDIA
     Dosage: 10 DROPS (BID), AURICULAR (OTIC) (SEE IMAGE)
     Route: 001
  2. ^Z PAK^ (AZITHROMYCIN) [Concomitant]

REACTIONS (6)
  - DEAFNESS UNILATERAL [None]
  - EAR PAIN [None]
  - HEADACHE [None]
  - HEARING IMPAIRED [None]
  - HYPERSENSITIVITY [None]
  - TINNITUS [None]
